FAERS Safety Report 11643476 (Version 1)
Quarter: 2015Q4

REPORT INFORMATION
  Report Type: Spontaneous
  Country: FR (occurrence: FR)
  Receive Date: 20151020
  Receipt Date: 20151020
  Transmission Date: 20160304
  Serious: Yes (Life-Threatening, Hospitalization, Other)
  Sender: FDA-Public Use
  Company Number: FR-PFIZER INC-2015352155

PATIENT
  Age: 62 Year
  Sex: Male

DRUGS (9)
  1. AMIODARONE HCL [Suspect]
     Active Substance: AMIODARONE HYDROCHLORIDE
     Dosage: 200 MG, DAILY
     Route: 048
  2. ALPRESS [Concomitant]
     Active Substance: PRAZOSIN
     Dosage: UNK
  3. COVERAM [Suspect]
     Active Substance: AMLODIPINE\PERINDOPRIL
     Dosage: 1 DF, DAILY
     Route: 048
     Dates: end: 201509
  4. ALLOPURINOL. [Concomitant]
     Active Substance: ALLOPURINOL
     Dosage: UNK
  5. COLCHIMAX [Concomitant]
     Active Substance: COLCHICINE\DICYCLOMINE HYDROCHLORIDE
     Dosage: UNK
  6. SPIRONOLACTONE. [Suspect]
     Active Substance: SPIRONOLACTONE
     Dosage: 25 MG, DAILY
     Route: 048
     Dates: end: 201509
  7. PREVISCAN [Concomitant]
     Active Substance: FLUINDIONE
     Dosage: UNK
  8. BISOPROLOL HEMIFUMARATE [Suspect]
     Active Substance: BISOPROLOL FUMARATE
     Dosage: 5 MG, DAILY
     Route: 048
     Dates: end: 201509
  9. LASILIX [Suspect]
     Active Substance: FUROSEMIDE
     Dosage: 60 MG, DAILY
     Route: 048
     Dates: end: 201509

REACTIONS (5)
  - Acute kidney injury [Recovering/Resolving]
  - Sinoatrial block [Unknown]
  - Diarrhoea [Recovered/Resolved]
  - Bradycardia [Recovered/Resolved]
  - Hyperkalaemia [Recovered/Resolved]

NARRATIVE: CASE EVENT DATE: 201509
